FAERS Safety Report 16914994 (Version 3)
Quarter: 2025Q1

REPORT INFORMATION
  Report Type: Spontaneous
  Country: US (occurrence: US)
  Receive Date: 20191014
  Receipt Date: 20250130
  Transmission Date: 20250409
  Serious: Yes (Hospitalization, Disabling, Other)
  Sender: TEVA
  Company Number: US-TEVA-2019-US-1121157

PATIENT
  Age: 61 Year
  Sex: Female

DRUGS (1)
  1. LISINOPRIL [Suspect]
     Active Substance: LISINOPRIL
     Indication: Hypertension
     Route: 065
     Dates: start: 20140709, end: 20140714

REACTIONS (10)
  - Anaphylactic reaction [Unknown]
  - Stress [Unknown]
  - Injury [Unknown]
  - Swollen tongue [Unknown]
  - Swelling face [Unknown]
  - Coma [Recovered/Resolved]
  - Drug hypersensitivity [Unknown]
  - Disability [Unknown]
  - Dyspnoea [Unknown]
  - Angioedema [Unknown]

NARRATIVE: CASE EVENT DATE: 20140101
